FAERS Safety Report 17909781 (Version 1)
Quarter: 2020Q2

REPORT INFORMATION
  Report Type: Spontaneous
  Country: US (occurrence: US)
  Receive Date: 20200617
  Receipt Date: 20200617
  Transmission Date: 20200714
  Serious: Yes (Other)
  Sender: FDA-Public Use
  Company Number: US-SUNOVION-2020SUN001770

PATIENT
  Sex: Female

DRUGS (1)
  1. BROVANA [Suspect]
     Active Substance: ARFORMOTEROL TARTRATE
     Indication: PRODUCT USED FOR UNKNOWN INDICATION
     Dosage: 15 ?G/2ML, BID
     Route: 055

REACTIONS (6)
  - Wheezing [Unknown]
  - Asthma [Unknown]
  - Fall [Unknown]
  - Therapy interrupted [Unknown]
  - Feeling abnormal [Unknown]
  - Ankle fracture [Unknown]
